FAERS Safety Report 14572264 (Version 2)
Quarter: 2018Q2

REPORT INFORMATION
  Report Type: Spontaneous
  Country: US (occurrence: US)
  Receive Date: 20180226
  Receipt Date: 20180426
  Transmission Date: 20180711
  Serious: Yes (Death, Hospitalization)
  Sender: FDA-Public Use
  Company Number: US-JNJFOC-20180233476

PATIENT
  Age: 59 Year
  Sex: Female

DRUGS (1)
  1. XARELTO [Suspect]
     Active Substance: RIVAROXABAN
     Indication: THROMBOSIS PROPHYLAXIS
     Route: 048
     Dates: start: 20140315, end: 20140905

REACTIONS (7)
  - Hepatic encephalopathy [Fatal]
  - Hepatitis alcoholic [Fatal]
  - Upper gastrointestinal haemorrhage [Unknown]
  - Prescribed underdose [Unknown]
  - Hepatic cirrhosis [Fatal]
  - Respiratory failure [Unknown]
  - Off label use [Unknown]

NARRATIVE: CASE EVENT DATE: 20140315
